FAERS Safety Report 8113361-7 (Version None)
Quarter: 2012Q1

REPORT INFORMATION
  Report Type: 
  Country: None (occurrence: None)
  Receive Date: 20120203
  Receipt Date: 20120131
  Transmission Date: 20120608
  Serious: Yes (Hospitalization)
  Sender: FDA-Public Use
  Company Number: PHHY2012TW008105

PATIENT
  Sex: Female

DRUGS (1)
  1. TASIGNA [Suspect]
     Indication: CHRONIC MYELOID LEUKAEMIA
     Dosage: 200 MG, BID
     Route: 048
     Dates: start: 20100612

REACTIONS (10)
  - LUNG INFILTRATION [None]
  - RESPIRATORY FAILURE [None]
  - CHRONIC OBSTRUCTIVE PULMONARY DISEASE [None]
  - HYPERCAPNIA [None]
  - PYREXIA [None]
  - DYSPNOEA [None]
  - RESPIRATORY ACIDOSIS [None]
  - BLOOD PRESSURE INCREASED [None]
  - COUGH [None]
  - CARDIOMEGALY [None]
